FAERS Safety Report 7813256-X (Version None)
Quarter: 2011Q4

REPORT INFORMATION
  Report Type: 
  Country: None (occurrence: None)
  Receive Date: 20111013
  Receipt Date: 20111006
  Transmission Date: 20120403
  Serious: Yes (Other)
  Sender: FDA-Public Use
  Company Number: FR-MERCK-1110FRA00046

PATIENT
  Age: 56 Year
  Sex: Female

DRUGS (1)
  1. JANUVIA [Suspect]
     Route: 048
     Dates: start: 20110726, end: 20110701

REACTIONS (2)
  - ANGIOEDEMA [None]
  - LARYNGEAL DYSPNOEA [None]
